FAERS Safety Report 13408185 (Version 2)
Quarter: 2017Q2

REPORT INFORMATION
  Report Type: Report from Study
  Country: JP (occurrence: JP)
  Receive Date: 20170406
  Receipt Date: 20170426
  Transmission Date: 20170830
  Serious: Yes (Hospitalization)
  Sender: FDA-Public Use
  Company Number: JP-ROCHE-1916339

PATIENT
  Age: 4 Month
  Sex: Female
  Weight: 1.87 kg

DRUGS (10)
  1. ALDACTONE A [Concomitant]
     Active Substance: SPIRONOLACTONE
     Indication: BRONCHOPULMONARY DYSPLASIA
     Dosage: 0.067 MG, TID
     Route: 048
     Dates: start: 20161217
  2. EPOETIN ALFA [Concomitant]
     Active Substance: ERYTHROPOIETIN
     Indication: ANAEMIA NEONATAL
     Dosage: 150 IU, QW2
     Route: 058
     Dates: start: 20170113
  3. RANIBIZUMAB [Suspect]
     Active Substance: RANIBIZUMAB
     Dosage: 0.2 MG, UNK
     Route: 031
  4. LASIX [Concomitant]
     Active Substance: FUROSEMIDE
     Indication: BRONCHOPULMONARY DYSPLASIA
     Dosage: 0.067 MG, TID
     Route: 048
     Dates: start: 20161217
  5. CORTRIL [Concomitant]
     Active Substance: HYDROCORTISONE
     Indication: CIRCULATORY FAILURE NEONATAL
     Dosage: 0.2 MG, TID
     Route: 048
     Dates: start: 20161218
  6. ALFAROL [Concomitant]
     Active Substance: ALFACALCIDOL
     Dosage: 0.2 UG, QD
     Route: 048
     Dates: start: 20161213
  7. RANIBIZUMAB [Suspect]
     Active Substance: RANIBIZUMAB
     Indication: RETINOPATHY OF PREMATURITY
     Dosage: 0.2 MG, UNK
     Route: 031
     Dates: start: 20170117, end: 20170117
  8. ALFAROL [Concomitant]
     Active Substance: ALFACALCIDOL
     Indication: OSTEOPENIA
     Route: 048
     Dates: start: 20161213
  9. LAC-B GRANULAR POWDER N [Concomitant]
     Indication: LOW BIRTH WEIGHT BABY
     Route: 048
     Dates: start: 20161102
  10. INCREMIN (JAPAN) [Concomitant]
     Indication: ANAEMIA NEONATAL
     Dosage: 3 MG, BID
     Route: 048
     Dates: start: 20170125

REACTIONS (1)
  - Cerebellar haemorrhage [Not Recovered/Not Resolved]

NARRATIVE: CASE EVENT DATE: 20170323
